FAERS Safety Report 6879283-4 (Version None)
Quarter: 2010Q3

REPORT INFORMATION
  Report Type: 
  Country: None (occurrence: None)
  Receive Date: 20100728
  Receipt Date: 20100721
  Transmission Date: 20110219
  Serious: Yes (Hospitalization)
  Sender: FDA-Public Use
  Company Number: US-SANOFI-AVENTIS-2010SA042977

PATIENT
  Age: 89 Year
  Sex: Female

DRUGS (6)
  1. MULTAQ [Suspect]
     Indication: ATRIAL FIBRILLATION
     Route: 048
     Dates: start: 20100101, end: 20100701
  2. LASIX [Concomitant]
     Route: 048
  3. LASIX [Concomitant]
     Route: 048
  4. POTASSIUM CHLORIDE [Concomitant]
  5. ASPIRIN [Concomitant]
  6. FENTANYL [Concomitant]

REACTIONS (3)
  - FALL [None]
  - HYPOTENSION [None]
  - LOWER LIMB FRACTURE [None]
